FAERS Safety Report 6223582-6 (Version None)
Quarter: 2009Q2

REPORT INFORMATION
  Report Type: 
  Country: None (occurrence: None)
  Receive Date: 20090610
  Receipt Date: 20080915
  Transmission Date: 20091009
  Serious: Yes (Other)
  Sender: FDA-Public Use
  Company Number: MK-6032429

PATIENT
  Age: 38 Year
  Sex: Male

DRUGS (5)
  1. ANAGRELIDE HCL [Suspect]
     Indication: THROMBOCYTOPENIA
     Dosage: 1000 MG;DAILY
  2. ASPIRIN [Concomitant]
  3. ALLOPURINOL [Concomitant]
  4. LISINOPRIL [Concomitant]
  5. BISOPROLOL [Concomitant]

REACTIONS (7)
  - DERMATITIS [None]
  - FIBROSIS [None]
  - NECROSIS [None]
  - NO THERAPEUTIC RESPONSE [None]
  - PAIN [None]
  - SKIN ULCER [None]
  - VASCULITIS [None]
